FAERS Safety Report 6754528-X (Version None)
Quarter: 2010Q2

REPORT INFORMATION
  Report Type: 
  Country: None (occurrence: None)
  Receive Date: 20100524
  Receipt Date: 20100316
  Transmission Date: 20101027
  Serious: No
  Sender: FDA-Public Use
  Company Number: 009071

PATIENT
  Sex: Male
  Weight: 107.5 kg

DRUGS (3)
  1. CIMZIA [Suspect]
     Indication: CROHN'S DISEASE
     Dosage: 400 MG 1X/2 WEEKS SUBCUTANEOUS
     Route: 058
     Dates: start: 20100301
  2. NEXIUM [Concomitant]
  3. FOLIC ACID [Concomitant]

REACTIONS (1)
  - PYREXIA [None]
